FAERS Safety Report 8472407-7 (Version None)
Quarter: 2012Q2

REPORT INFORMATION
  Report Type: 
  Country: None (occurrence: None)
  Receive Date: 20120627
  Receipt Date: 20110816
  Transmission Date: 20120825
  Serious: No
  Sender: FDA-Public Use
  Company Number: US-AMGEN-USASP2011042111

PATIENT
  Age: 87 Year
  Sex: Male
  Weight: 49.887 kg

DRUGS (4)
  1. PROCRIT [Suspect]
     Dosage: 20000 IU, Q2WK
     Route: 058
     Dates: start: 20110201, end: 20110501
  2. PROCRIT [Suspect]
     Indication: NEPHROGENIC ANAEMIA
     Dosage: 10000 IU, Q2WK
     Route: 058
     Dates: start: 20030101, end: 20110201
  3. CARDIAC THERAPY [Concomitant]
     Indication: CARDIAC DISORDER
     Dosage: UNK
  4. ANTIHYPERTENSIVES [Concomitant]
     Indication: HYPERTENSION
     Dosage: UNK

REACTIONS (2)
  - HAEMOGLOBIN DECREASED [None]
  - HAEMOGLOBIN INCREASED [None]
